FAERS Safety Report 7780814-0 (Version None)
Quarter: 2011Q3

REPORT INFORMATION
  Report Type: 
  Country: None (occurrence: None)
  Receive Date: 20110927
  Receipt Date: 20110916
  Transmission Date: 20111222
  Serious: Yes (Hospitalization)
  Sender: FDA-Public Use
  Company Number: US-BAYER-2011-021183

PATIENT
  Age: 29 Year
  Sex: Female
  Weight: 86 kg

DRUGS (24)
  1. ERYTHROMYCIN [Concomitant]
     Indication: BRONCHITIS
  2. CYCLOPHOSPHAMIDE [Concomitant]
     Indication: SLEEP DISORDER THERAPY
     Dosage: UNK
     Dates: start: 20090101, end: 20100930
  3. FLUCONAZOLE [Concomitant]
     Dosage: UNK
     Dates: start: 20100901
  4. FLUCONAZOLE [Concomitant]
     Dosage: UNK
     Dates: start: 20100920
  5. XYZAL [Concomitant]
     Dosage: UNK
     Dates: start: 20100915
  6. BUTALBITAL [Concomitant]
     Dosage: UNK
     Dates: start: 20100920
  7. PROMETHAZINE [Concomitant]
     Indication: ANTIALLERGIC THERAPY
     Dosage: UNK
     Dates: start: 20101026
  8. DOXYCYCLINE [Concomitant]
     Indication: BACTERIAL INFECTION
  9. COMBIVENT [Concomitant]
     Indication: BRONCHITIS
  10. CITALOPRAM [Concomitant]
     Indication: ANXIETY
     Dosage: UNK
     Dates: start: 20100201, end: 20101104
  11. HYDROCODONE [Concomitant]
     Dosage: UNK
     Dates: start: 20100713
  12. FEXOFENADINE [Concomitant]
     Indication: MULTIPLE ALLERGIES
     Dosage: UNK
     Dates: start: 20100723, end: 20100930
  13. COMBIVENT [Concomitant]
     Indication: PNEUMONIA
     Dosage: UNK
     Dates: start: 20101101
  14. METHYLPREDNISOLONE [Concomitant]
     Indication: BACTERIAL INFECTION
     Dosage: UNK
     Dates: start: 20100723, end: 20101026
  15. SINGULAIR [Concomitant]
     Dosage: UNK
     Dates: start: 20100901
  16. VITAMIN B-12 [Concomitant]
     Dosage: UNK
     Dates: start: 20100902
  17. BETAMETHAXONE [Concomitant]
     Dosage: UNK
     Dates: start: 20100723
  18. FLINTSTONES GUMMIES [Concomitant]
     Dosage: UNK
     Dates: start: 20100901
  19. CEFDINIR [Concomitant]
     Dosage: UNK
     Dates: start: 20100920
  20. RELPAX [Concomitant]
     Dosage: UNK
     Dates: start: 20100921
  21. YAZ [Suspect]
     Indication: ACNE
     Dosage: UNK
     Dates: start: 20100201, end: 20101101
  22. YAZ [Suspect]
     Indication: MENSTRUATION IRREGULAR
  23. IBUPROFEN [Concomitant]
     Dosage: UNK
     Dates: start: 20100713
  24. ERYTHROMYCIN [Concomitant]
     Indication: PNEUMONIA
     Dosage: UNK
     Dates: start: 20101101

REACTIONS (4)
  - PULMONARY INFARCTION [None]
  - DYSPNOEA [None]
  - PULMONARY EMBOLISM [None]
  - CHEST PAIN [None]
